FAERS Safety Report 9237227 (Version 2)
Quarter: 2013Q2

REPORT INFORMATION
  Report Type: Spontaneous
  Country: HU (occurrence: HU)
  Receive Date: 20130417
  Receipt Date: 20130429
  Transmission Date: 20140414
  Serious: Yes (Life-Threatening, Other)
  Sender: FDA-Public Use
  Company Number: HU-ACTAVIS-2013-06455

PATIENT
  Age: 59 Year
  Sex: Male

DRUGS (5)
  1. METRONIDAZOLE (UNKNOWN) [Suspect]
     Indication: CLOSTRIDIUM DIFFICILE COLITIS
     Dosage: UNKNOWN
     Route: 065
  2. VANCOMYCIN HYDROCHLORIDE (UNKNOWN) [Suspect]
     Indication: CLOSTRIDIUM DIFFICILE COLITIS
     Dosage: 125 MG, FOUR
     Route: 048
  3. VANCOMYCIN HYDROCHLORIDE (UNKNOWN) [Suspect]
     Dosage: 500 MG,FOUR
     Route: 048
  4. CEFTRIAXONE [Concomitant]
     Indication: NOSOCOMIAL INFECTION
     Dosage: UNKNOWN
     Route: 065
  5. AMIKACIN [Concomitant]
     Indication: NOSOCOMIAL INFECTION
     Dosage: UNKNOWN
     Route: 065

REACTIONS (7)
  - Pathogen resistance [Recovered/Resolved]
  - Clostridium difficile colitis [Recovered/Resolved]
  - Drug ineffective [Recovered/Resolved]
  - Systemic inflammatory response syndrome [Recovered/Resolved]
  - Protein-losing gastroenteropathy [Recovered/Resolved]
  - Generalised oedema [Recovered/Resolved]
  - Respiratory failure [Recovered/Resolved]
